FAERS Safety Report 11409282 (Version 1)
Quarter: 2015Q3

REPORT INFORMATION
  Report Type: Spontaneous
  Country: DE (occurrence: DE)
  Receive Date: 20150824
  Receipt Date: 20150824
  Transmission Date: 20151125
  Serious: Yes (Hospitalization)
  Sender: FDA-Public Use
  Company Number: DE-ROCHE-1624687

PATIENT
  Sex: Male

DRUGS (14)
  1. VINCRISTINE [Suspect]
     Active Substance: VINCRISTINE
     Indication: B-CELL LYMPHOMA
     Dosage: DATE LAST CYCLE OF CHOP STARTED PRIOR TO SAE: 11.03.15.
     Route: 042
     Dates: start: 20141203, end: 20150311
  2. SITAGLIPTINA/METFORMINA [Concomitant]
  3. PEGFILGRASTIM [Suspect]
     Active Substance: PEGFILGRASTIM
     Indication: B-CELL LYMPHOMA
     Route: 058
     Dates: start: 20141205, end: 20150314
  4. DOXORUBICINE [Suspect]
     Active Substance: DOXORUBICIN
     Indication: B-CELL LYMPHOMA
     Dosage: DATE LAST CYCLE OF CHOP STARTED PRIOR TO SAE: 11.03.15.
     Route: 042
     Dates: start: 20141203, end: 20150311
  5. PANTOPRAZOLE SODIUM. [Concomitant]
     Active Substance: PANTOPRAZOLE SODIUM
  6. GRANISETRON [Concomitant]
     Active Substance: GRANISETRON
     Route: 065
     Dates: start: 20141203, end: 20150311
  7. POTASSIUM SODIUM HYDROGEN CITRATE [Concomitant]
     Route: 065
     Dates: start: 20141203, end: 20150311
  8. ACICLOVIR [Concomitant]
     Active Substance: ACYCLOVIR
     Route: 065
     Dates: start: 20141203
  9. RITUXIMAB [Suspect]
     Active Substance: RITUXIMAB
     Indication: B-CELL LYMPHOMA
     Dosage: MOST RECENT CYCLE NUMBER: 6. DATE LAST RITUXIMAB GIVEN PRIOR TO SAE: 10.03.15
     Route: 042
     Dates: start: 20141202
  10. CYCLOPHOSPHAMIDE. [Suspect]
     Active Substance: CYCLOPHOSPHAMIDE
     Indication: B-CELL LYMPHOMA
     Dosage: DATE LAST CYCLE OF CHOP STARTED PRIOR TO SAE: 11.03.15.
     Route: 042
     Dates: start: 20141203, end: 20150311
  11. SULFAMETHOXAZOLE/TRIMETHOPRIM [Concomitant]
     Active Substance: SULFAMETHOXAZOLE\TRIMETHOPRIM
     Route: 065
     Dates: start: 20141203
  12. METAMIZOLE SODIUM [Concomitant]
     Active Substance: METAMIZOLE SODIUM
     Route: 065
     Dates: start: 20141202, end: 20150311
  13. MESNA. [Concomitant]
     Active Substance: MESNA
  14. PREDNISONE. [Suspect]
     Active Substance: PREDNISONE
     Indication: B-CELL LYMPHOMA
     Dosage: 5 DAYS A CYCLE
     Route: 048
     Dates: start: 20141203, end: 20150315

REACTIONS (4)
  - Leukopenia [Recovered/Resolved]
  - General physical health deterioration [Not Recovered/Not Resolved]
  - Thrombocytopenia [Unknown]
  - Anaemia [Unknown]

NARRATIVE: CASE EVENT DATE: 20150320
